FAERS Safety Report 11347801 (Version 1)
Quarter: 2015Q3

REPORT INFORMATION
  Report Type: Spontaneous
  Country: US (occurrence: US)
  Receive Date: 20150803
  Receipt Date: 20150803
  Transmission Date: 20151125
  Serious: Yes (Other)
  Sender: FDA-Public Use
  Company Number: US-ELI_LILLY_AND_COMPANY-US201110003871

PATIENT
  Age: 50 Year
  Sex: Female

DRUGS (1)
  1. ZYPREXA [Suspect]
     Active Substance: OLANZAPINE
     Indication: ANXIETY
     Dosage: 5 MG, UNK

REACTIONS (10)
  - Hypersomnia [Unknown]
  - Memory impairment [Unknown]
  - Arthralgia [Unknown]
  - Blister [Unknown]
  - Joint swelling [Unknown]
  - Weight increased [Recovering/Resolving]
  - Off label use [Unknown]
  - Fluid retention [Unknown]
  - Intentional product misuse [Unknown]
  - Joint injury [Unknown]

NARRATIVE: CASE EVENT DATE: 2011
